FAERS Safety Report 8881996 (Version 1)
Quarter: 2012Q4

REPORT INFORMATION
  Report Type: 
  Country: ES (occurrence: ES)
  Receive Date: 20121105
  Receipt Date: 20121105
  Transmission Date: 20130627
  Serious: Yes (Death, Hospitalization)
  Sender: FDA-Public Use
  Company Number: ES-JNJFOC-20121014034

PATIENT
  Age: 90 Year
  Sex: Female

DRUGS (2)
  1. RISPERDAL [Suspect]
     Indication: RESTLESSNESS
     Route: 048
     Dates: start: 2011, end: 20120907
  2. LORMETAZEPAM [Interacting]
     Indication: INSOMNIA
     Route: 048
     Dates: start: 2011, end: 20120907

REACTIONS (5)
  - Pneumonia aspiration [Fatal]
  - Dysphagia [Fatal]
  - Dehydration [Fatal]
  - Sedation [Fatal]
  - Drug interaction [Unknown]
